FAERS Safety Report 6031530-7 (Version None)
Quarter: 2008Q4

REPORT INFORMATION
  Report Type: 
  Country: None (occurrence: None)
  Receive Date: 20081224
  Receipt Date: 20080123
  Transmission Date: 20090506
  Serious: Yes (Other)
  Sender: FDA-Public Use
  Company Number: FEI2008-0156

PATIENT
  Age: 41 Year
  Sex: Female
  Weight: 68.0396 kg

DRUGS (2)
  1. PARAGARD T 380A [Suspect]
     Indication: CONTRACEPTION
     Dosage: INTRA-UTERINE
     Route: 015
     Dates: start: 19990101, end: 20080121
  2. UNSPECIFIED THYROID MEDICATION (THYROID) [Concomitant]

REACTIONS (7)
  - GENITAL HAEMORRHAGE [None]
  - IUCD COMPLICATION [None]
  - MENORRHAGIA [None]
  - METRORRHAGIA [None]
  - PAIN [None]
  - UTERINE RUPTURE [None]
  - VAGINAL HAEMORRHAGE [None]
